FAERS Safety Report 22646530 (Version 1)
Quarter: 2023Q2

REPORT INFORMATION
  Report Type: Spontaneous
  Country: CA (occurrence: CA)
  Receive Date: 20230627
  Receipt Date: 20230627
  Transmission Date: 20230721
  Serious: Yes (Disabling)
  Sender: FDA-Public Use
  Company Number: CA-BAUSCH-BL-2023-009541

PATIENT
  Age: 54 Year
  Sex: Female

DRUGS (1)
  1. CONTRAVE [Suspect]
     Active Substance: BUPROPION HYDROCHLORIDE\NALTREXONE HYDROCHLORIDE
     Indication: Obesity
     Dosage: 90/8 MG, EXTENDED RELEASE TABLET
     Route: 048

REACTIONS (2)
  - Neuralgia [Recovered/Resolved]
  - Dry mouth [Recovering/Resolving]
